FAERS Safety Report 25831090 (Version 1)
Quarter: 2025Q3

REPORT INFORMATION
  Report Type: Spontaneous
  Country: JP (occurrence: JP)
  Receive Date: 20250922
  Receipt Date: 20250922
  Transmission Date: 20251021
  Serious: Yes (Death, Other)
  Sender: AMGEN
  Company Number: JP-AMGEN-JPNSP2025184487

PATIENT

DRUGS (5)
  1. PEGFILGRASTIM [Suspect]
     Active Substance: PEGFILGRASTIM
     Indication: Prophylaxis
     Route: 065
  2. METHOTREXATE [Concomitant]
     Active Substance: METHOTREXATE
     Indication: Bladder cancer
     Route: 065
  3. VINBLASTINE [Concomitant]
     Active Substance: VINBLASTINE
     Indication: Bladder cancer
     Route: 065
  4. DOXORUBICIN [Concomitant]
     Active Substance: DOXORUBICIN
     Indication: Bladder cancer
  5. CISPLATIN [Concomitant]
     Active Substance: CISPLATIN
     Indication: Bladder cancer

REACTIONS (14)
  - Neoplasm malignant [Fatal]
  - Nephropathy toxic [Unknown]
  - Bladder cancer [Unknown]
  - Neutropenia [Unknown]
  - Febrile neutropenia [Unknown]
  - Thrombocytopenia [Unknown]
  - Gastrointestinal disorder [Unknown]
  - Fatigue [Unknown]
  - Anaemia [Unknown]
  - Hiccups [Unknown]
  - Decreased appetite [Unknown]
  - Alopecia [Unknown]
  - Blood creatinine increased [Unknown]
  - Stomatitis [Unknown]
